FAERS Safety Report 19289324 (Version 2)
Quarter: 2021Q3

REPORT INFORMATION
  Report Type: Spontaneous
  Country: US (occurrence: US)
  Receive Date: 20210521
  Receipt Date: 20210825
  Transmission Date: 20211014
  Serious: Yes (Other)
  Sender: FDA-Public Use
  Company Number: US-PFIZER INC-2021556033

PATIENT
  Age: 57 Year
  Sex: Female

DRUGS (1)
  1. IBRANCE [Suspect]
     Active Substance: PALBOCICLIB
     Dosage: UNK

REACTIONS (9)
  - Infected bite [Unknown]
  - Candida infection [Unknown]
  - Eye infection bacterial [Unknown]
  - Oral pain [Unknown]
  - Arthropod bite [Unknown]
  - Fatigue [Unknown]
  - Ear infection [Unknown]
  - Immune system disorder [Unknown]
  - Taste disorder [Unknown]
